FAERS Safety Report 14240574 (Version 2)
Quarter: 2018Q4

REPORT INFORMATION
  Report Type: Spontaneous
  Country: US (occurrence: US)
  Receive Date: 20171130
  Receipt Date: 20181211
  Transmission Date: 20190204
  Serious: No
  Sender: FDA-Public Use
  Company Number: US-NOVOPROD-567072

PATIENT
  Age: 11 Year
  Sex: Male

DRUGS (1)
  1. NOVOEIGHT 2000 IU [Suspect]
     Active Substance: TUROCTOCOG ALFA
     Indication: FACTOR VIII DEFICIENCY
     Dosage: 2094 U, QOD
     Route: 042
     Dates: start: 201611, end: 201701

REACTIONS (1)
  - Pruritus [Recovered/Resolved]
